FAERS Safety Report 21355870 (Version 1)
Quarter: 2022Q3

REPORT INFORMATION
  Report Type: Spontaneous
  Country: CA (occurrence: None)
  Receive Date: 20220920
  Receipt Date: 20220920
  Transmission Date: 20221026
  Serious: Yes (Life-Threatening, Hospitalization, Other)
  Sender: FDA-Public Use
  Company Number: None

PATIENT
  Age: 53 Year
  Sex: Female
  Weight: 67.05 kg

DRUGS (3)
  1. DOXORUBICIN [Suspect]
     Active Substance: DOXORUBICIN
     Indication: Breast cancer
     Dosage: OTHER ROUTE : INTRAVENOUS CHEMOTHERAPY;?
     Route: 050
     Dates: start: 20220902, end: 20220903
  2. CYCLOPHOSPHAMIDE [Suspect]
     Active Substance: CYCLOPHOSPHAMIDE
  3. PINAVERIUM BROMIDE [Concomitant]
     Active Substance: PINAVERIUM BROMIDE

REACTIONS (12)
  - Procedural haemorrhage [None]
  - Anaemia [None]
  - Nausea [None]
  - Dizziness [None]
  - Dysuria [None]
  - Vomiting [None]
  - Dysarthria [None]
  - Delirium [None]
  - Loss of consciousness [None]
  - Blood sodium decreased [None]
  - Blood potassium decreased [None]
  - Urinary tract infection [None]

NARRATIVE: CASE EVENT DATE: 20220903
